FAERS Safety Report 6618982-6 (Version None)
Quarter: 2010Q1

REPORT INFORMATION
  Report Type: 
  Country: None (occurrence: None)
  Receive Date: 20100308
  Receipt Date: 20100301
  Transmission Date: 20100710
  Serious: Yes (Life-Threatening)
  Sender: FDA-Public Use
  Company Number: PHHY2010US12679

PATIENT
  Sex: Female

DRUGS (6)
  1. ENABLEX [Suspect]
     Dosage: UNK
     Route: 048
  2. PREMARIN [Suspect]
  3. ANTIDEPRESSANTS [Suspect]
  4. FOSAMAX [Concomitant]
  5. LIPITOR [Concomitant]
  6. CALCIUM W/VITAMIN D NOS [Concomitant]

REACTIONS (4)
  - DYSURIA [None]
  - MICTURITION URGENCY [None]
  - SECRETION DISCHARGE [None]
  - SUICIDAL IDEATION [None]
